FAERS Safety Report 25502502 (Version 3)
Quarter: 2025Q3

REPORT INFORMATION
  Report Type: Spontaneous
  Country: US (occurrence: US)
  Receive Date: 20250702
  Receipt Date: 20250814
  Transmission Date: 20251020
  Serious: No
  Sender: LEO PHARM
  Company Number: US-LEO Pharma-381030

PATIENT
  Age: 17 Year
  Sex: Male

DRUGS (1)
  1. ADBRY [Suspect]
     Active Substance: TRALOKINUMAB-LDRM
     Indication: Dermatitis atopic
     Dosage: THE PATIENT IS ALLERGIC TO ADBRY? AND REQUESTED FOR ADBRY? TO BE DISCONTINUED
     Route: 058
     Dates: start: 202505, end: 202507

REACTIONS (1)
  - Mood swings [Recovered/Resolved]
